FAERS Safety Report 9482429 (Version 1)
Quarter: 2013Q3

REPORT INFORMATION
  Report Type: Spontaneous
  Country: US (occurrence: US)
  Receive Date: 20130828
  Receipt Date: 20130828
  Transmission Date: 20140515
  Serious: No
  Sender: FDA-Public Use
  Company Number: US-SANOFI-AVENTIS-2013SA057891

PATIENT
  Sex: Female

DRUGS (1)
  1. SKLICE [Suspect]
     Indication: LICE INFESTATION

REACTIONS (1)
  - Drug ineffective [Unknown]
